FAERS Safety Report 6306347-6 (Version None)
Quarter: 2009Q3

REPORT INFORMATION
  Report Type: 
  Country: None (occurrence: None)
  Receive Date: 20090810
  Receipt Date: 20090727
  Transmission Date: 20100115
  Serious: Yes (Hospitalization)
  Sender: FDA-Public Use
  Company Number: 2009AL005061

PATIENT
  Age: 79 Year
  Sex: Male

DRUGS (8)
  1. RAMIPRIL [Suspect]
     Indication: HYPERTENSION
     Dosage: 5 MG; BID; PO
     Route: 048
  2. SPIRONOLACTONE [Suspect]
     Indication: HYPERTENSION
     Dosage: 25 MG; QD; PO
     Route: 048
     Dates: start: 20090629
  3. PIOGLITAZONE [Concomitant]
  4. ALLOPURINOL [Concomitant]
  5. AMLODIPINE [Concomitant]
  6. LOSARTAN [Concomitant]
  7. NATRIUM HYDROGEN CARBONATE [Concomitant]
  8. SIMVASTATIN [Concomitant]

REACTIONS (2)
  - PROTEINURIA [None]
  - RENAL IMPAIRMENT [None]
